FAERS Safety Report 18347453 (Version 1)
Quarter: 2020Q4

REPORT INFORMATION
  Report Type: Report from Study
  Country: BR (occurrence: BR)
  Receive Date: 20201006
  Receipt Date: 20201006
  Transmission Date: 20210114
  Serious: Yes (Other)
  Sender: FDA-Public Use
  Company Number: NVSC2020BR267807

PATIENT

DRUGS (1)
  1. ENTRESTO [Suspect]
     Active Substance: SACUBITRIL\VALSARTAN
     Indication: PRODUCT USED FOR UNKNOWN INDICATION
     Dosage: UNK (LONG TIME AGO)
     Route: 065

REACTIONS (5)
  - Deafness [Unknown]
  - Tinnitus [Unknown]
  - Cardiac disorder [Unknown]
  - Disturbance in attention [Unknown]
  - Memory impairment [Unknown]
